FAERS Safety Report 4543481-5 (Version None)
Quarter: 2005Q1

REPORT INFORMATION
  Report Type: 
  Country: None (occurrence: None)
  Receive Date: 20050103
  Receipt Date: 20041222
  Transmission Date: 20050727
  Serious: Yes (Other)
  Sender: FDA-Public Use
  Company Number: US-GLAXOSMITHKLINE-A0538493A

PATIENT
  Age: 74 Year
  Sex: Female

DRUGS (7)
  1. ECOTRIN ADULT LOW STRENGTH TABLETS [Suspect]
     Indication: ANALGESIC INTERVENTION SUPPORTIVE THERAPY
     Route: 048
     Dates: start: 20041101, end: 20041218
  2. PLAVIX [Concomitant]
     Indication: COAGULOPATHY
     Route: 048
  3. METOPROLOL [Concomitant]
     Indication: BLOOD PRESSURE
     Route: 048
  4. GLUCOVANCE [Concomitant]
     Indication: DIABETES MELLITUS
     Route: 048
  5. LIPITOR [Concomitant]
  6. ALTACE [Concomitant]
     Indication: BLOOD PRESSURE
     Route: 048
  7. GEMFIBROZIL [Concomitant]
     Indication: BLOOD TRIGLYCERIDES INCREASED
     Route: 048

REACTIONS (1)
  - HAEMORRHAGE [None]
